FAERS Safety Report 21203895 (Version 1)
Quarter: 2022Q3

REPORT INFORMATION
  Report Type: Spontaneous
  Country: JP (occurrence: JP)
  Receive Date: 20220811
  Receipt Date: 20220811
  Transmission Date: 20221027
  Serious: Yes (Hospitalization)
  Sender: FDA-Public Use
  Company Number: JP-SAKK-01224918

PATIENT
  Sex: Female

DRUGS (2)
  1. DUPIXENT [Suspect]
     Active Substance: DUPILUMAB
     Indication: Chronic rhinosinusitis with nasal polyps
     Dosage: UNK, BIM
     Route: 058
     Dates: start: 20210315, end: 20210915
  2. DUPIXENT [Suspect]
     Active Substance: DUPILUMAB
     Dosage: UNK UNK, QOW
     Route: 058
     Dates: start: 20220620

REACTIONS (6)
  - Nodular rash [Recovering/Resolving]
  - Eczema [Recovering/Resolving]
  - Peripheral swelling [Recovering/Resolving]
  - Limb discomfort [Recovering/Resolving]
  - Face oedema [Recovered/Resolved]
  - Erythema [Recovered/Resolved]

NARRATIVE: CASE EVENT DATE: 20211001
